FAERS Safety Report 4407219-4 (Version None)
Quarter: 2004Q3

REPORT INFORMATION
  Report Type: 
  Country: None (occurrence: None)
  Receive Date: 20040721
  Receipt Date: 20040706
  Transmission Date: 20050211
  Serious: Yes (Hospitalization, Disabling, Other)
  Sender: FDA-Public Use
  Company Number: USA040771912

PATIENT
  Sex: Female
  Weight: 115 kg

DRUGS (6)
  1. HUMULIN N [Suspect]
     Indication: DIABETES MELLITUS
     Dosage: 96 U DAY
     Dates: start: 19950101
  2. HUMULIN R [Suspect]
     Indication: DIABETES MELLITUS
     Dosage: 36 U DAY
     Dates: start: 19950101
  3. TOPROL-XL [Concomitant]
  4. NORVASC [Concomitant]
  5. HYDROCHLOROTHIAZIDE [Concomitant]
  6. DIOVAN [Concomitant]

REACTIONS (5)
  - ARTERIAL DISORDER [None]
  - ARTERIAL STENOSIS [None]
  - BLINDNESS UNILATERAL [None]
  - CEREBROVASCULAR ACCIDENT [None]
  - RETINAL ARTERY EMBOLISM [None]
